FAERS Safety Report 20591122 (Version 1)
Quarter: 2022Q1

REPORT INFORMATION
  Report Type: Spontaneous
  Country: CA (occurrence: CA)
  Receive Date: 20220314
  Receipt Date: 20220314
  Transmission Date: 20220423
  Serious: Yes (Life-Threatening, Hospitalization, Other)
  Sender: FDA-Public Use
  Company Number: CA-SA-SAC20220311001302

PATIENT
  Age: 78 Year
  Sex: Female

DRUGS (6)
  1. ENOXAPARIN SODIUM [Suspect]
     Active Substance: ENOXAPARIN SODIUM
  2. CLOPIDOGREL BISULFATE [Suspect]
     Active Substance: CLOPIDOGREL BISULFATE
  3. ASPIRIN [Suspect]
     Active Substance: ASPIRIN
  4. ENOXAPARIN [Suspect]
     Active Substance: ENOXAPARIN
  5. TENECTEPLASE [Suspect]
     Active Substance: TENECTEPLASE
  6. DOBUTAMINE [Concomitant]
     Active Substance: DOBUTAMINE HYDROCHLORIDE

REACTIONS (7)
  - Epistaxis [Unknown]
  - Haemorrhage [Unknown]
  - Drug interaction [Unknown]
  - Medication error [Unknown]
  - Pharyngeal disorder [Unknown]
  - Spinal epidural haematoma [Unknown]
  - Stridor [Unknown]
